FAERS Safety Report 5049552-1 (Version None)
Quarter: 2006Q2

REPORT INFORMATION
  Report Type: 
  Country: None (occurrence: None)
  Receive Date: 20060613
  Receipt Date: 20060413
  Transmission Date: 20061013
  Serious: Yes (Other)
  Sender: FDA-Public Use
  Company Number: 2006-00879

PATIENT

DRUGS (2)
  1. VELCADE [Suspect]
     Indication: DRUG USE FOR UNKNOWN INDICATION
     Dates: end: 20060401
  2. FLUDARABINE PHOSPHATE [Suspect]
     Indication: DRUG USE FOR UNKNOWN INDICATION
     Dates: end: 20060401

REACTIONS (1)
  - THROMBOCYTOPENIA [None]
